FAERS Safety Report 5532379-1 (Version None)
Quarter: 2007Q4

REPORT INFORMATION
  Report Type: 
  Country: None (occurrence: None)
  Receive Date: 20071203
  Receipt Date: 20071122
  Transmission Date: 20080405
  Serious: Yes (Life-Threatening, Other)
  Sender: FDA-Public Use
  Company Number: FR-PFIZER INC-2007023837

PATIENT
  Sex: Male
  Weight: 77 kg

DRUGS (2)
  1. CHAMPIX [Suspect]
     Indication: EX-SMOKER
     Route: 048
     Dates: start: 20070220, end: 20070319
  2. ALCOHOL [Suspect]

REACTIONS (3)
  - DELIRIUM [None]
  - FEELING JITTERY [None]
  - HOMICIDAL IDEATION [None]
